FAERS Safety Report 18388230 (Version 2)
Quarter: 2020Q4

REPORT INFORMATION
  Report Type: Report from Study
  Country: CA (occurrence: CA)
  Receive Date: 20201015
  Receipt Date: 20201112
  Transmission Date: 20210114
  Serious: Yes (Other)
  Sender: FDA-Public Use
  Company Number: CA-JNJFOC-20201015703

PATIENT
  Age: 46 Year
  Sex: Female
  Weight: 97.61 kg

DRUGS (1)
  1. STELARA [Suspect]
     Active Substance: USTEKINUMAB
     Indication: CROHN^S DISEASE
     Route: 058
     Dates: start: 20180920

REACTIONS (2)
  - Mammoplasty [Recovering/Resolving]
  - Skin mass [Unknown]

NARRATIVE: CASE EVENT DATE: 2020
